FAERS Safety Report 4336918-8 (Version None)
Quarter: 2004Q2

REPORT INFORMATION
  Report Type: 
  Country: None (occurrence: None)
  Receive Date: 20040408
  Receipt Date: 20040326
  Transmission Date: 20050107
  Serious: Yes (Other)
  Sender: FDA-Public Use
  Company Number: HQWYE213929MAR04

PATIENT
  Sex: 0

DRUGS (1)
  1. EFFEXOR XR [Suspect]
     Dosage: ORAL; TAKEN DURING FIRST TRIMESTER
     Route: 048

REACTIONS (2)
  - CONVULSION NEONATAL [None]
  - MATERNAL DRUGS AFFECTING FOETUS [None]
